FAERS Safety Report 10742723 (Version 1)
Quarter: 2015Q1

REPORT INFORMATION
  Report Type: Report from Study
  Country: TR (occurrence: TR)
  Receive Date: 20150127
  Receipt Date: 20150127
  Transmission Date: 20150721
  Serious: Yes (Other)
  Sender: FDA-Public Use
  Company Number: TR-EMD SERONO-7336405

PATIENT
  Age: 29 Year
  Sex: Male
  Weight: 65 kg

DRUGS (9)
  1. PREDNOL                            /00049601/ [Suspect]
     Active Substance: METHYLPREDNISOLONE
     Indication: MULTIPLE SCLEROSIS
  2. IMURAN [Suspect]
     Active Substance: AZATHIOPRINE
     Indication: IMMUNOSUPPRESSION
  3. SUPRAFEN [Concomitant]
     Active Substance: IBUPROFEN
     Indication: PAIN
  4. NEXIUM [Concomitant]
     Active Substance: ESOMEPRAZOLE MAGNESIUM
     Indication: GASTROINTESTINAL DISORDER
  5. SUPRAFEN [Concomitant]
     Active Substance: IBUPROFEN
     Indication: ANTIPYRESIS
  6. PREGABALIN. [Concomitant]
     Active Substance: PREGABALIN
     Indication: ARTHRALGIA
  7. REBIF [Suspect]
     Active Substance: INTERFERON BETA-1A
     Indication: MULTIPLE SCLEROSIS
  8. PAROL [Concomitant]
     Active Substance: ACETAMINOPHEN
     Indication: ANALGESIC THERAPY
     Dosage: WHEN NEEDED
  9. PAROL [Concomitant]
     Active Substance: ACETAMINOPHEN
     Indication: ANTIPYRESIS

REACTIONS (2)
  - Glaucoma [Unknown]
  - Osteoporosis [Unknown]

NARRATIVE: CASE EVENT DATE: 201408
